FAERS Safety Report 7077589-X (Version None)
Quarter: 2010Q4

REPORT INFORMATION
  Report Type: 
  Country: None (occurrence: None)
  Receive Date: 20101021
  Receipt Date: 20101006
  Transmission Date: 20110411
  Serious: Yes (Life-Threatening, Hospitalization)
  Sender: FDA-Public Use
  Company Number: 2010BI035026

PATIENT
  Age: 57 Year
  Sex: Female

DRUGS (16)
  1. ZEVALIN [Suspect]
     Indication: FOLLICLE CENTRE LYMPHOMA, FOLLICULAR GRADE I, II, III STAGE IV
     Dosage: 935 MEQ;1X;IV
     Route: 042
     Dates: start: 20100309, end: 20100316
  2. RITUXIMAB [Concomitant]
  3. LOXONIN [Concomitant]
  4. POLARAMINE [Concomitant]
  5. FERROUS CITRATE [Concomitant]
  6. GASLON N_OD [Concomitant]
  7. MAGNESIUM OXIDE [Concomitant]
  8. GENINAX [Concomitant]
  9. MYSLEE [Concomitant]
  10. GASTER [Concomitant]
  11. CYCLOPHOSPHAMIDE [Concomitant]
  12. DOXORUBICIN HYDROCHLORIDE [Concomitant]
  13. VINCRISTINE SULFATE [Concomitant]
  14. PREDNISOLONE [Concomitant]
  15. FLUDEOXYGLUCOSE [Concomitant]
  16. RITUXIMAB [Concomitant]

REACTIONS (6)
  - ENTEROCOLITIS [None]
  - HAEMOGLOBIN DECREASED [None]
  - ILEUS [None]
  - NEUTROPHIL COUNT DECREASED [None]
  - PLATELET COUNT DECREASED [None]
  - WHITE BLOOD CELL COUNT DECREASED [None]
